FAERS Safety Report 8345072-7 (Version None)
Quarter: 2012Q2

REPORT INFORMATION
  Report Type: 
  Country: None (occurrence: None)
  Receive Date: 20120508
  Receipt Date: 20120424
  Transmission Date: 20120825
  Serious: No
  Sender: FDA-Public Use
  Company Number: US-BAYER-2012-043880

PATIENT
  Age: 88 Year
  Sex: Female
  Weight: 54 kg

DRUGS (3)
  1. PLAVIX [Concomitant]
  2. MULTI-VITAMINS [Concomitant]
  3. NAPROXEN SODIUM [Suspect]
     Indication: ARTHRITIS
     Dosage: 2 DF, BID
     Route: 048
     Dates: start: 20120301, end: 20120401

REACTIONS (1)
  - NO ADVERSE EVENT [None]
